FAERS Safety Report 14766535 (Version 2)
Quarter: 2018Q2

REPORT INFORMATION
  Report Type: Report from Study
  Country: GB (occurrence: GB)
  Receive Date: 20180416
  Receipt Date: 20180510
  Transmission Date: 20180711
  Serious: Yes (Other)
  Sender: FDA-Public Use
  Company Number: PHHY2018GB041174

PATIENT
  Age: 74 Year
  Sex: Female

DRUGS (21)
  1. BENSERAZIDE [Concomitant]
     Active Substance: BENSERAZIDE
     Dosage: 3 DF (100 MG), QD (STOPPED ON 07 OCT 2017)
     Route: 048
     Dates: start: 20170815
  2. HYDROXOCOBALAMINE [Concomitant]
     Active Substance: HYDROXOCOBALAMIN
     Indication: HYPOVITAMINOSIS
     Dosage: ONCE EVERY 12 WEEKS (STOPPED ON 07 OCT 2017)
     Route: 058
     Dates: start: 200203
  3. OLANZAPINE. [Concomitant]
     Active Substance: OLANZAPINE
     Indication: PSYCHOTIC SYMPTOM
     Dosage: 1 DF, QD (STOPPED ON 07 OCT 2017)
     Route: 048
     Dates: start: 20121213
  4. FORTISIP [Concomitant]
     Active Substance: CARBOHYDRATES\FATTY ACIDS\MINERALS\PROTEIN\VITAMINS
     Indication: SUPPLEMENTATION THERAPY
     Dosage: 2 DF, QD (1 SHAKE)
     Route: 048
     Dates: start: 20170815, end: 20170829
  5. PARACETAMOL [Concomitant]
     Active Substance: ACETAMINOPHEN
     Indication: PAIN
     Dosage: 500 MG, PRN (STOPPED ON 07 OCT 2017)
     Route: 048
     Dates: start: 20040203
  6. COLECALCIFEROL [Concomitant]
     Active Substance: CHOLECALCIFEROL
     Indication: VITAMIN D DEFICIENCY
     Dosage: 1 DF, QW
     Route: 048
     Dates: start: 20170815, end: 20170921
  7. TROSPIUM CHLORIDE. [Concomitant]
     Active Substance: TROSPIUM CHLORIDE
     Indication: BLADDER DISORDER
     Dosage: 1 DF, QD (STOPPED ON 07 OCT 2017)
     Route: 048
     Dates: start: 20160720
  8. LEVODOPA [Concomitant]
     Active Substance: LEVODOPA
     Dosage: 3 DF (25 MG), QD (STOPPED ON 07 OCT 2017)
     Route: 048
     Dates: start: 20170815
  9. LORAZEPAM. [Concomitant]
     Active Substance: LORAZEPAM
     Indication: DEMENTIA
     Dosage: 2 DF, QD STOPPED ON 07 OCT 2017
     Route: 058
     Dates: start: 201512
  10. FLUDROCORTISONE ACETATE. [Concomitant]
     Active Substance: FLUDROCORTISONE ACETATE
     Indication: BLOOD PRESSURE ABNORMAL
     Dosage: 3 DF, QD (STOPPED ON 07 OCT 2017)
     Route: 048
     Dates: start: 20150728
  11. PROMETAX [Suspect]
     Active Substance: RIVASTIGMINE
     Indication: PARKINSON^S DISEASE
     Dosage: 13.3 MG, QD PATCH 15 (CM2)
     Route: 062
     Dates: start: 201602
  12. LEVODOPA [Concomitant]
     Active Substance: LEVODOPA
     Indication: PARKINSON^S DISEASE
     Dosage: 3 DF (50 MG), QD
     Route: 048
     Dates: start: 20140624, end: 20170814
  13. CALCEOS [Concomitant]
     Active Substance: CALCIUM CARBONATE\CHOLECALCIFEROL
     Indication: BONE DISORDER
     Dosage: 2 DF, QD (STOPPED ON 07 OCT 2017)
     Route: 048
     Dates: start: 20150813
  14. BISACODYL. [Concomitant]
     Active Substance: BISACODYL
     Indication: DRUG ABUSE
     Dosage: 2 DF, QD (STOPPED ON 07 OCT 2017)
     Route: 048
     Dates: start: 20160112
  15. PROMETAX [Suspect]
     Active Substance: RIVASTIGMINE
     Indication: DEMENTIA ALZHEIMER^S TYPE
  16. MEMANTINE HYDROCHLORIDE. [Concomitant]
     Active Substance: MEMANTINE HYDROCHLORIDE
     Indication: DEMENTIA
     Dosage: 1 DF, QD (STOPPED ON 07 OCT 2017)
     Route: 048
     Dates: start: 201609
  17. CLONAZEPAM. [Concomitant]
     Active Substance: CLONAZEPAM
     Indication: ANXIETY
     Dosage: 1 DF, QD STOPPED ON 07 OCT 2017
     Route: 048
     Dates: start: 20150602
  18. DALTEPARIN SODIUM [Concomitant]
     Active Substance: DALTEPARIN SODIUM
     Indication: PROPHYLAXIS
     Dosage: 1 DF, QD
     Route: 058
     Dates: start: 20170815, end: 20170829
  19. MEMANTINE. [Concomitant]
     Active Substance: MEMANTINE
     Indication: DEMENTIA
     Dosage: 1 DF, QD (STOPPED ON 07 OCT 2017)
     Route: 048
     Dates: start: 20170706
  20. BENSERAZIDE [Concomitant]
     Active Substance: BENSERAZIDE
     Indication: PARKINSON^S DISEASE
     Dosage: 3 DF (200 MG), QD
     Route: 048
     Dates: start: 20140625, end: 20170814
  21. CODEINE [Concomitant]
     Active Substance: CODEINE
     Indication: PAIN
     Dosage: 4 DF, QD
     Route: 048
     Dates: start: 20170801, end: 20170829

REACTIONS (3)
  - Mental disorder [Unknown]
  - Constipation [Unknown]
  - Femur fracture [Unknown]

NARRATIVE: CASE EVENT DATE: 201602
